FAERS Safety Report 14897209 (Version 1)
Quarter: 2018Q2

REPORT INFORMATION
  Report Type: Spontaneous
  Country: IT (occurrence: IT)
  Receive Date: 20180515
  Receipt Date: 20180515
  Transmission Date: 20180711
  Serious: Yes (Hospitalization)
  Sender: FDA-Public Use
  Company Number: IT-BAUSCH-BL-2018-013473

PATIENT
  Age: 73 Year
  Sex: Female

DRUGS (5)
  1. METFORMIN [Suspect]
     Active Substance: METFORMIN HYDROCHLORIDE
     Indication: TYPE 2 DIABETES MELLITUS
     Route: 048
     Dates: start: 20150401, end: 20150728
  2. TICLOPIDINE HYDROCHLORIDE. [Interacting]
     Active Substance: TICLOPIDINE HYDROCHLORIDE
     Indication: ANTICOAGULANT THERAPY
     Route: 048
     Dates: start: 20000101, end: 20150728
  3. REPAGLINIDE. [Interacting]
     Active Substance: REPAGLINIDE
     Indication: TYPE 2 DIABETES MELLITUS
     Route: 048
     Dates: start: 20150401, end: 20150728
  4. TORASEMIDE [Concomitant]
     Active Substance: TORSEMIDE
     Indication: HYPERTENSION
  5. ATENOLOL. [Concomitant]
     Active Substance: ATENOLOL
     Indication: HYPERTENSION

REACTIONS (5)
  - Pancytopenia [Not Recovered/Not Resolved]
  - Aplastic anaemia [Unknown]
  - Cerebral haemorrhage [Unknown]
  - Petechiae [Not Recovered/Not Resolved]
  - Drug interaction [Unknown]

NARRATIVE: CASE EVENT DATE: 20150701
